FAERS Safety Report 17339583 (Version 1)
Quarter: 2020Q1

REPORT INFORMATION
  Report Type: Spontaneous
  Country: US (occurrence: US)
  Receive Date: 20200114
  Receipt Date: 20200114
  Transmission Date: 20200409
  Serious: Yes (Hospitalization)
  Sender: FDA-Public Use
  Company Number: None

PATIENT
  Sex: Female

DRUGS (13)
  1. CONTOUR TES NEXT [Concomitant]
  2. METOPROL TAR [Concomitant]
  3. SILDENAFIL 20MG TAB [Suspect]
     Active Substance: SILDENAFIL
     Indication: PULMONARY ARTERIAL HYPERTENSION
     Dosage: ?          OTHER DOSE:1 TAB;?
     Route: 048
     Dates: start: 20190209
  4. CLOPIDOGREL [Concomitant]
     Active Substance: CLOPIDOGREL BISULFATE
  5. GABAPENTIN. [Concomitant]
     Active Substance: GABAPENTIN
  6. PANTOPRAZOLE [Concomitant]
     Active Substance: PANTOPRAZOLE
  7. VITAMIN D [Concomitant]
     Active Substance: VITAMIN D NOS
  8. BUMETANIDE. [Concomitant]
     Active Substance: BUMETANIDE
  9. POT CL MICRO [Concomitant]
  10. ATORVASTATIN [Concomitant]
     Active Substance: ATORVASTATIN
  11. FEROSUL [Concomitant]
     Active Substance: FERROUS SULFATE
  12. MICROLET [Concomitant]
  13. VALACYCLOVIR [Concomitant]
     Active Substance: VALACYCLOVIR HYDROCHLORIDE

REACTIONS (2)
  - Dyspnoea [None]
  - Asthenia [None]
